FAERS Safety Report 15408943 (Version 2)
Quarter: 2018Q3

REPORT INFORMATION
  Report Type: Spontaneous
  Country: IT (occurrence: IT)
  Receive Date: 20180920
  Receipt Date: 20180924
  Transmission Date: 20181010
  Serious: Yes (Hospitalization)
  Sender: FDA-Public Use
  Company Number: PHHY2018IT103180

PATIENT
  Age: 80 Year
  Sex: Female

DRUGS (5)
  1. FUROSEMIDE. [Suspect]
     Active Substance: FUROSEMIDE
     Indication: DRUG ADMINISTRATION ERROR
     Dosage: 75 MG, UNK
     Route: 048
     Dates: start: 20180901, end: 20180901
  2. IRBESARTAN. [Suspect]
     Active Substance: IRBESARTAN
     Indication: DRUG ADMINISTRATION ERROR
     Dosage: 300 MG, UNK
     Route: 048
     Dates: start: 20180901, end: 20180901
  3. DILZENE [Suspect]
     Active Substance: DILTIAZEM HYDROCHLORIDE
     Indication: DRUG ADMINISTRATION ERROR
     Dosage: 120 MG, UNK
     Route: 048
     Dates: start: 20180901, end: 20180901
  4. EDOXABAN [Suspect]
     Active Substance: EDOXABAN TOSYLATE
     Indication: DRUG ADMINISTRATION ERROR
     Dosage: 1 ?G/L, UNK
     Route: 048
     Dates: start: 20180901, end: 20180901
  5. BISOPROLOL FUMARATE. [Suspect]
     Active Substance: BISOPROLOL FUMARATE
     Indication: DRUG ADMINISTRATION ERROR
     Dosage: 5 MG, UNK
     Route: 048
     Dates: start: 20180901, end: 20180901

REACTIONS (2)
  - Medication error [Recovering/Resolving]
  - Bradycardia [Recovering/Resolving]

NARRATIVE: CASE EVENT DATE: 20180901
